FAERS Safety Report 7208365-2 (Version None)
Quarter: 2011Q1

REPORT INFORMATION
  Report Type: 
  Country: None (occurrence: None)
  Receive Date: 20110104
  Receipt Date: 20101221
  Transmission Date: 20110831
  Serious: Yes (Life-Threatening, Hospitalization)
  Sender: FDA-Public Use
  Company Number: PHHY2010FI86949

PATIENT
  Sex: Male

DRUGS (7)
  1. TENOX [Concomitant]
     Indication: SLEEP DISORDER
     Dosage: 20-40MG PER DAY
     Dates: start: 20100913
  2. FUCIDINE CAP [Concomitant]
     Indication: SKIN ULCER
     Dosage: TWO TIMES PER DAY INTRADERMALLY
     Dates: start: 20100913
  3. TEMESTA [Concomitant]
     Indication: ANXIETY
     Dosage: 1-2 TABLETS THREE TIMES PER DAY
     Route: 048
     Dates: start: 20100913
  4. BURANA [Concomitant]
     Indication: PAIN
     Dosage: ONE TABLET THREE TIMES PER DAY
     Route: 048
     Dates: start: 20100914
  5. LEPONEX [Suspect]
     Indication: PSYCHOTIC DISORDER
     Dosage: 400 MG/DAY
     Route: 048
     Dates: start: 20100930, end: 20101116
  6. RISPERDAL [Concomitant]
     Indication: PSYCHOTIC DISORDER
     Dosage: 6 MG, QD
     Route: 048
     Dates: start: 20100913
  7. PARACETAMOL [Concomitant]
     Indication: PAIN
     Dosage: ONE TABLET THREE TIMES PER DAY
     Route: 048
     Dates: start: 20100914

REACTIONS (3)
  - INFECTION [None]
  - NEUTROPENIA [None]
  - C-REACTIVE PROTEIN INCREASED [None]
